FAERS Safety Report 5899912-1 (Version None)
Quarter: 2008Q3

REPORT INFORMATION
  Report Type: 
  Country: None (occurrence: None)
  Receive Date: 20080926
  Receipt Date: 20080919
  Transmission Date: 20090109
  Serious: Yes (Hospitalization, Disabling, Other)
  Sender: FDA-Public Use
  Company Number: A0734155A

PATIENT
  Age: 66 Year
  Sex: Female
  Weight: 78.2 kg

DRUGS (9)
  1. VALTREX [Suspect]
     Indication: DRUG USE FOR UNKNOWN INDICATION
     Dosage: 500MG THREE TIMES PER DAY
     Route: 048
     Dates: start: 20080601, end: 20080601
  2. TRICOR [Concomitant]
     Route: 048
  3. LIPITOR [Concomitant]
     Route: 048
  4. METFORMIN HCL [Concomitant]
     Route: 048
  5. DIGOXIN [Concomitant]
     Route: 048
  6. PAXIL [Concomitant]
     Route: 048
  7. TOPROL-XL [Concomitant]
     Route: 048
  8. NPH INSULIN, BEEF [Concomitant]
  9. DEMEROL [Concomitant]
     Route: 048

REACTIONS (7)
  - BLINDNESS UNILATERAL [None]
  - DIABETES MELLITUS INADEQUATE CONTROL [None]
  - DRUG DISPENSING ERROR [None]
  - RETINAL ARTERY OCCLUSION [None]
  - VISUAL ACUITY TESTS ABNORMAL [None]
  - VISUAL FIELD DEFECT [None]
  - WRONG DRUG ADMINISTERED [None]
